FAERS Safety Report 25771217 (Version 1)
Quarter: 2025Q3

REPORT INFORMATION
  Report Type: Spontaneous
  Country: US (occurrence: US)
  Receive Date: 20250908
  Receipt Date: 20250908
  Transmission Date: 20251021
  Serious: No
  Sender: DOMPE FARMACEUTICI
  Company Number: US-FARMAPROD-202504-1106

PATIENT
  Sex: Female

DRUGS (17)
  1. OXERVATE [Suspect]
     Active Substance: CENEGERMIN-BKBJ
     Indication: Neurotrophic keratopathy
     Route: 047
     Dates: start: 20250330
  2. OXERVATE [Suspect]
     Active Substance: CENEGERMIN-BKBJ
  3. JOINTHEALTH [Concomitant]
  4. CALCIUM-MAGNESIUM-ZINC-VIT D [Concomitant]
  5. VITAMINS [Concomitant]
     Active Substance: VITAMINS
  6. CICLOPIROX [Concomitant]
     Active Substance: CICLOPIROX
  7. FISH OIL [Concomitant]
     Active Substance: FISH OIL
  8. FAMOTIDINE [Concomitant]
     Active Substance: FAMOTIDINE
  9. FLUOROURACIL [Concomitant]
     Active Substance: FLUOROURACIL
  10. XIIDRA [Concomitant]
     Active Substance: LIFITEGRAST
  11. TYRVAYA [Concomitant]
     Active Substance: VARENICLINE TARTRATE
  12. TACROLIMUS [Concomitant]
     Active Substance: TACROLIMUS
  13. PRAVASTATIN SODIUM [Concomitant]
     Active Substance: PRAVASTATIN SODIUM
  14. IPRATROPIUM BROMIDE [Concomitant]
     Active Substance: IPRATROPIUM BROMIDE
  15. CEQUA [Concomitant]
     Active Substance: CYCLOSPORINE
  16. PROPRANOLOL HYDROCHLORIDE [Concomitant]
     Active Substance: PROPRANOLOL HYDROCHLORIDE
  17. ATENOLOL [Concomitant]
     Active Substance: ATENOLOL

REACTIONS (8)
  - Eye pain [Not Recovered/Not Resolved]
  - Headache [Unknown]
  - Dizziness [Unknown]
  - Eye swelling [Unknown]
  - Swelling of eyelid [Not Recovered/Not Resolved]
  - Erythema of eyelid [Unknown]
  - Product dose omission issue [Unknown]
  - Eyelid pain [Unknown]
